FAERS Safety Report 13561884 (Version 1)
Quarter: 2017Q2

REPORT INFORMATION
  Report Type: Spontaneous
  Country: IT (occurrence: IT)
  Receive Date: 20170518
  Receipt Date: 20170518
  Transmission Date: 20170830
  Serious: Yes (Hospitalization)
  Sender: FDA-Public Use
  Company Number: IT-DSJP-DSE-2017-114717

PATIENT

DRUGS (2)
  1. LIXIANA [Suspect]
     Active Substance: EDOXABAN TOSYLATE
     Indication: VENOUS THROMBOSIS
     Dosage: 30 MG, QD
     Route: 048
     Dates: start: 20170410, end: 201704
  2. MEDROL [Concomitant]
     Active Substance: METHYLPREDNISOLONE
     Indication: PEMPHIGOID
     Dosage: 8 MG, UNK
     Route: 048
     Dates: start: 20170409

REACTIONS (6)
  - Duodenitis [Recovering/Resolving]
  - Gastric ulcer [Recovering/Resolving]
  - Erosive oesophagitis [Recovering/Resolving]
  - Duodenal ulcer [Recovering/Resolving]
  - Gastric disorder [Recovering/Resolving]
  - Melanosis [Recovering/Resolving]

NARRATIVE: CASE EVENT DATE: 20170414
